FAERS Safety Report 6854083-X (Version None)
Quarter: 2010Q3

REPORT INFORMATION
  Report Type: 
  Country: None (occurrence: None)
  Receive Date: 20100717
  Receipt Date: 20080205
  Transmission Date: 20110219
  Serious: Yes (Other)
  Sender: FDA-Public Use
  Company Number: US-PFIZER INC-2007105271

PATIENT
  Age: 85 Year
  Sex: Male
  Weight: 76.363 kg

DRUGS (3)
  1. CHANTIX [Suspect]
     Indication: SMOKING CESSATION THERAPY
     Dates: start: 20071101
  2. SIMVASTATIN [Concomitant]
     Indication: BLOOD CHOLESTEROL
  3. GEMFIBROZIL [Concomitant]
     Indication: BLOOD CHOLESTEROL

REACTIONS (4)
  - DECREASED APPETITE [None]
  - DEPRESSION [None]
  - HYPERSOMNIA [None]
  - NAUSEA [None]
